FAERS Safety Report 6622727-3 (Version None)
Quarter: 2010Q1

REPORT INFORMATION
  Report Type: 
  Country: None (occurrence: None)
  Receive Date: 20100310
  Receipt Date: 20100302
  Transmission Date: 20100710
  Serious: Yes (Other)
  Sender: FDA-Public Use
  Company Number: US-BAYER-200935678NA

PATIENT
  Age: 23 Year
  Sex: Female
  Weight: 143 kg

DRUGS (1)
  1. MIRENA [Suspect]
     Indication: CONTRACEPTION
     Route: 015
     Dates: start: 20071016, end: 20090921

REACTIONS (2)
  - ECTOPIC PREGNANCY [None]
  - VAGINAL HAEMORRHAGE [None]
